FAERS Safety Report 5391047-X (Version None)
Quarter: 2007Q3

REPORT INFORMATION
  Report Type: 
  Country: None (occurrence: None)
  Receive Date: 20070717
  Receipt Date: 20070702
  Transmission Date: 20080115
  Serious: Yes (Hospitalization, Disabling)
  Sender: FDA-Public Use
  Company Number: 2007S1003795

PATIENT
  Age: 69 Year
  Sex: Female
  Weight: 79.3795 kg

DRUGS (2)
  1. FUROSEMIDE [Suspect]
     Indication: CARDIAC FAILURE CONGESTIVE
     Dosage: 20 MG;3 TIMES PER WEEK;ORAL ; 20 MG;3 TIMES PER WEEK;ORAL
     Route: 048
     Dates: end: 20070115
  2. FUROSEMIDE [Suspect]
     Indication: CARDIAC FAILURE CONGESTIVE
     Dosage: 20 MG;3 TIMES PER WEEK;ORAL ; 20 MG;3 TIMES PER WEEK;ORAL
     Route: 048
     Dates: start: 20070313

REACTIONS (8)
  - APHONIA [None]
  - ATRIOVENTRICULAR BLOCK [None]
  - EYE SWELLING [None]
  - FACE OEDEMA [None]
  - HYPERSENSITIVITY [None]
  - LIP SWELLING [None]
  - SWELLING FACE [None]
  - URTICARIA [None]
